FAERS Safety Report 5567902-4 (Version None)
Quarter: 2007Q4

REPORT INFORMATION
  Report Type: 
  Country: None (occurrence: None)
  Receive Date: 20071218
  Receipt Date: 20071218
  Transmission Date: 20080405
  Serious: No
  Sender: FDA-Public Use
  Company Number: None

PATIENT
  Age: 20 Year
  Sex: Male
  Weight: 58.514 kg

DRUGS (1)
  1. HALOPERIDOL [Suspect]
     Dosage: 10MG BID PO
     Route: 048

REACTIONS (1)
  - OCULOGYRIC CRISIS [None]
